FAERS Safety Report 24801960 (Version 1)
Quarter: 2025Q1

REPORT INFORMATION
  Report Type: Spontaneous
  Country: FR (occurrence: FR)
  Receive Date: 20250102
  Receipt Date: 20250102
  Transmission Date: 20250409
  Serious: Yes (Hospitalization)
  Sender: BANNER
  Company Number: None

PATIENT
  Age: 19 Year
  Sex: Female

DRUGS (2)
  1. ENGERIX-B [Suspect]
     Active Substance: HEPATITIS B VIRUS SUBTYPE ADW2 HBSAG SURFACE PROTEIN ANTIGEN
     Indication: Immunisation
     Route: 030
     Dates: start: 20241003, end: 20241003
  2. IBUPROFEN [Suspect]
     Active Substance: IBUPROFEN
     Indication: Dysmenorrhoea
     Route: 048

REACTIONS (1)
  - Vascular purpura [Recovering/Resolving]

NARRATIVE: CASE EVENT DATE: 20241024
